FAERS Safety Report 17819995 (Version 1)
Quarter: 2020Q2

REPORT INFORMATION
  Report Type: Spontaneous
  Country: US (occurrence: US)
  Receive Date: 20200525
  Receipt Date: 20200525
  Transmission Date: 20200714
  Serious: No
  Sender: FDA-Public Use
  Company Number: US-INCYTE CORPORATION-2020IN004433

PATIENT

DRUGS (1)
  1. JAKAFI [Suspect]
     Active Substance: RUXOLITINIB
     Indication: POLYCYTHAEMIA VERA
     Dosage: 5MG BID ALTERNAITNG WITH 5MG IN THE MORNING AND 10MG IN THE EVENING
     Route: 048
     Dates: start: 20170322

REACTIONS (2)
  - Product dose omission [Unknown]
  - Fatigue [Unknown]
